FAERS Safety Report 11374806 (Version 2)
Quarter: 2015Q3

REPORT INFORMATION
  Report Type: Spontaneous
  Country: US (occurrence: US)
  Receive Date: 20150813
  Receipt Date: 20150828
  Transmission Date: 20151125
  Serious: Yes (Hospitalization)
  Sender: FDA-Public Use
  Company Number: US-ROCHE-1619445

PATIENT
  Age: 54 Year
  Sex: Female
  Weight: 61.68 kg

DRUGS (16)
  1. RITUXAN [Suspect]
     Active Substance: RITUXIMAB
     Indication: B-CELL LYMPHOMA
     Route: 042
     Dates: start: 20150623, end: 20150720
  2. ZOLPIDEM [Concomitant]
     Active Substance: ZOLPIDEM\ZOLPIDEM TARTRATE
     Route: 048
     Dates: start: 20150706
  3. NACL .9% [Concomitant]
     Dosage: DISCONTINUED.
     Route: 042
     Dates: end: 20150701
  4. ZOLPIDEM [Concomitant]
     Active Substance: ZOLPIDEM\ZOLPIDEM TARTRATE
     Route: 048
     Dates: start: 20150508
  5. ADVAIR DISKUS [Concomitant]
     Active Substance: FLUTICASONE PROPIONATE\SALMETEROL XINAFOATE
     Dosage: 1 PUFFS, ROUTE: INHALATION?ON 06/JUL/2015, RECEIVED FLUTICASONE (500 MCG) /SALMETEROL (50 MCG) 1 PUF
     Route: 001
     Dates: start: 20141114
  6. RITUXAN [Suspect]
     Active Substance: RITUXIMAB
     Indication: EXTRANODAL MARGINAL ZONE B-CELL LYMPHOMA (MALT TYPE)
  7. NACL .9% [Concomitant]
     Dosage: FLUSH
     Route: 042
     Dates: start: 20150701
  8. SPIRIVA [Concomitant]
     Active Substance: TIOTROPIUM BROMIDE MONOHYDRATE
     Dosage: ON 06/JUL/2015, RECEIVED IT
     Route: 055
  9. HEPARIN LOCK FLUSH [Concomitant]
     Active Substance: HEPARIN SODIUM
     Dosage: HEPARIN (100 UNITS/ML) AND LOCK FLUSH 5000 UNITS
     Route: 050
     Dates: start: 20150701
  10. PROAIR HFA [Concomitant]
     Active Substance: ALBUTEROL SULFATE
     Dosage: 2 PUFF?AS NEEDED FOR WHEEZING, ROUTE NEBULIZATION?ON 06/JUL/2015, RECEIVED IT
     Route: 065
     Dates: start: 20141114
  11. ENOXAPARIN [Concomitant]
     Active Substance: ENOXAPARIN
     Route: 058
  12. VICODIN [Concomitant]
     Active Substance: ACETAMINOPHEN\HYDROCODONE BITARTRATE
     Indication: PAIN
     Dosage: HYDROCODONE TARTRATE (5 MG) /PARACETAMOL (325 MG)?NOT TAKE ON 06/JUL/2015.
     Route: 048
  13. PROCHLORPERAZINE. [Concomitant]
     Active Substance: PROCHLORPERAZINE
     Dosage: 5 MG IN 0.9% NACL (50 ML IV)
     Route: 042
  14. MONTELUKAST [Concomitant]
     Active Substance: MONTELUKAST SODIUM
     Dosage: ON 06/JUL/2015, HE RECEIVED DOSE
     Route: 048
     Dates: start: 20150521
  15. IPRATROPIUM BROMIDE/SALBUTAMOL [Concomitant]
     Route: 065
  16. NEXIUM 24HR [Concomitant]
     Active Substance: ESOMEPRAZOLE MAGNESIUM
     Route: 048
     Dates: start: 20150306

REACTIONS (15)
  - Pyrexia [Recovered/Resolved]
  - Rash [Recovered/Resolved]
  - Amnesia [Not Recovered/Not Resolved]
  - Oedema [Not Recovered/Not Resolved]
  - Pain in extremity [Not Recovered/Not Resolved]
  - Pain [Recovered/Resolved]
  - White blood cell count increased [Recovered/Resolved]
  - Back pain [Not Recovered/Not Resolved]
  - Bone pain [Recovered/Resolved]
  - Headache [Recovered/Resolved]
  - Visual impairment [Recovered/Resolved]
  - Hypotension [Recovered/Resolved]
  - Musculoskeletal stiffness [Recovered/Resolved]
  - Swelling [Not Recovered/Not Resolved]
  - Nausea [Unknown]

NARRATIVE: CASE EVENT DATE: 20150703
